FAERS Safety Report 8937164 (Version 1)
Quarter: 2012Q4

REPORT INFORMATION
  Report Type: Spontaneous
  Country: US (occurrence: None)
  Receive Date: 20121128
  Receipt Date: 20121128
  Transmission Date: 20130627
  Serious: Yes (Other)
  Sender: FDA-Public Use
  Company Number: None

PATIENT
  Age: 64 Year
  Sex: Female
  Weight: 57.61 kg

DRUGS (1)
  1. LEVOFLOXACIN [Suspect]
     Indication: LUNG INFECTION
     Dosage: 1 TABLET 7 DAYS MOUTH
     Route: 048
     Dates: start: 20120815, end: 20120819

REACTIONS (3)
  - Muscular weakness [None]
  - Pain in extremity [None]
  - Musculoskeletal stiffness [None]
